FAERS Safety Report 8793443 (Version 1)
Quarter: 2012Q4

REPORT INFORMATION
  Report Type: 
  Country: US (occurrence: US)
  Receive Date: 20120918
  Receipt Date: 20120918
  Transmission Date: 20130627
  Serious: Yes (Death, Hospitalization, Other)
  Sender: FDA-Public Use
  Company Number: PHHY2012US079939

PATIENT
  Age: 19 Year
  Sex: Female

DRUGS (4)
  1. MYCOPHENOLIC ACID [Suspect]
     Indication: LUNG TRANSPLANT
     Dosage: 750 mg, BID
     Route: 048
  2. TACROLIMUS [Concomitant]
  3. SIROLIMUS [Concomitant]
  4. PREDNISONE [Concomitant]
     Dosage: 5 mg, daily

REACTIONS (7)
  - Death [Fatal]
  - Cerebrovascular accident [Unknown]
  - Pulmonary embolism [Unknown]
  - Lung transplant rejection [Unknown]
  - Hypercoagulation [Unknown]
  - Dyspnoea exertional [Unknown]
  - Cough [Unknown]
